FAERS Safety Report 10145522 (Version 3)
Quarter: 2014Q2

REPORT INFORMATION
  Report Type: Spontaneous
  Country: IT (occurrence: IT)
  Receive Date: 20140501
  Receipt Date: 20140528
  Transmission Date: 20141212
  Serious: Yes (Other)
  Sender: FDA-Public Use
  Company Number: IT-CELGENEUS-083-21660-14043483

PATIENT
  Age: 61 Year
  Sex: Female
  Weight: 72 kg

DRUGS (1)
  1. ABRAXANE [Suspect]
     Indication: BREAST CANCER
     Dosage: 445 MILLIGRAM
     Route: 041
     Dates: start: 20140227, end: 20140320

REACTIONS (2)
  - Transaminases increased [Recovering/Resolving]
  - Neutropenia [Recovering/Resolving]
